FAERS Safety Report 6132530-9 (Version None)
Quarter: 2009Q1

REPORT INFORMATION
  Report Type: 
  Country: None (occurrence: None)
  Receive Date: 20090325
  Receipt Date: 20090319
  Transmission Date: 20090719
  Serious: Yes (Other)
  Sender: FDA-Public Use
  Company Number: PT-ABBOTT-09P-130-0497526-00

PATIENT
  Age: 50 Year
  Sex: Female

DRUGS (8)
  1. HUMIRA [Suspect]
     Indication: PSORIASIS
     Route: 058
     Dates: start: 20080903, end: 20081230
  2. ZARATOR [Concomitant]
     Indication: DYSLIPIDAEMIA
     Dates: start: 19990101
  3. BISOPROLOL FUMARATE [Concomitant]
     Indication: DRUG USE FOR UNKNOWN INDICATION
  4. VASTAREL [Concomitant]
     Indication: DRUG USE FOR UNKNOWN INDICATION
  5. UNISEDIL [Concomitant]
     Indication: DRUG USE FOR UNKNOWN INDICATION
     Dates: start: 19970101
  6. PARIET [Concomitant]
     Indication: DRUG USE FOR UNKNOWN INDICATION
     Dates: start: 19990101
  7. MESOGLYCAN [Concomitant]
     Indication: DRUG USE FOR UNKNOWN INDICATION
  8. FLAVONES [Concomitant]
     Indication: DRUG USE FOR UNKNOWN INDICATION
     Dates: start: 20081101

REACTIONS (11)
  - ABDOMINAL PAIN UPPER [None]
  - ALANINE AMINOTRANSFERASE INCREASED [None]
  - ARTHRALGIA [None]
  - ASPARTATE AMINOTRANSFERASE INCREASED [None]
  - BLOOD ALKALINE PHOSPHATASE INCREASED [None]
  - GAMMA-GLUTAMYLTRANSFERASE INCREASED [None]
  - HEADACHE [None]
  - MALAISE [None]
  - NAUSEA [None]
  - PYREXIA [None]
  - VOMITING [None]
